FAERS Safety Report 9679370 (Version 1)
Quarter: 2013Q4

REPORT INFORMATION
  Report Type: Spontaneous
  Country: US (occurrence: US)
  Receive Date: 20131109
  Receipt Date: 20131109
  Transmission Date: 20140711
  Serious: No
  Sender: FDA-Public Use
  Company Number: US-SANOFI-AVENTIS-2013SA029928

PATIENT
  Age: 76 Year
  Sex: Female

DRUGS (4)
  1. ALLEGRA-D, 24 HR [Suspect]
     Indication: EAR CONGESTION
     Dosage: 180MG/240MG
     Route: 048
     Dates: start: 201212
  2. ALLEGRA-D, 24 HR [Suspect]
     Indication: MIDDLE EAR EFFUSION
     Dosage: 180MG/240MG
     Route: 048
     Dates: start: 201212
  3. ALLEGRA [Suspect]
     Route: 048
  4. FLUTICASONE [Concomitant]
     Indication: EAR CONGESTION

REACTIONS (3)
  - Oropharyngeal pain [Not Recovered/Not Resolved]
  - Dry throat [Not Recovered/Not Resolved]
  - Drug ineffective [Not Recovered/Not Resolved]
